FAERS Safety Report 5227806-3 (Version None)
Quarter: 2007Q1

REPORT INFORMATION
  Report Type: 
  Country: None (occurrence: None)
  Receive Date: 20070202
  Receipt Date: 20070122
  Transmission Date: 20070707
  Serious: Yes (Other)
  Sender: FDA-Public Use
  Company Number: US-PFIZER INC-2007006854

PATIENT
  Sex: Female
  Weight: 52.2 kg

DRUGS (6)
  1. CHANTIX [Suspect]
     Indication: SMOKING CESSATION THERAPY
  2. EFFEXOR [Concomitant]
  3. KLONOPIN [Concomitant]
     Indication: ANXIETY
  4. PROTONIX [Concomitant]
     Indication: GASTRIC ULCER
  5. AMBIEN [Concomitant]
  6. BUSPAR [Concomitant]

REACTIONS (3)
  - FEELING JITTERY [None]
  - NERVOUSNESS [None]
  - RESTLESS LEGS SYNDROME [None]
